FAERS Safety Report 5239813-5 (Version None)
Quarter: 2007Q1

REPORT INFORMATION
  Report Type: 
  Country: None (occurrence: None)
  Receive Date: 20070216
  Receipt Date: 20030227
  Transmission Date: 20070707
  Serious: Yes (Death)
  Sender: FDA-Public Use
  Company Number: SE-NOVOPROD-257576

PATIENT
  Age: 49 Year
  Sex: Female
  Weight: 85 kg

DRUGS (3)
  1. NOVOSEVEN [Suspect]
     Indication: HAEMORRHAGE
     Dosage: 6 MG, UNK
     Dates: start: 20021105
  2. TRANEXAMIC ACID [Concomitant]
     Dates: start: 20020411
  3. DESMOPRESSIN [Concomitant]
     Dates: start: 20020311

REACTIONS (1)
  - MYOCARDIAL INFARCTION [None]
